FAERS Safety Report 19326481 (Version 2)
Quarter: 2021Q2

REPORT INFORMATION
  Report Type: Spontaneous
  Country: JP (occurrence: JP)
  Receive Date: 20210528
  Receipt Date: 20210621
  Transmission Date: 20210717
  Serious: Yes (Other)
  Sender: FDA-Public Use
  Company Number: JP-MACLEODS PHARMACEUTICALS US LTD-MAC2021031268

PATIENT

DRUGS (1)
  1. RISEDRONATE [Suspect]
     Active Substance: RISEDRONATE SODIUM
     Indication: OSTEOPOROSIS
     Dosage: 17.5 MILLIGRAM, Q.W., RISENDRONIC ACID
     Route: 048

REACTIONS (3)
  - Stress fracture [Recovered/Resolved]
  - Tibia fracture [Recovered/Resolved]
  - Atypical fracture [Recovered/Resolved]
